FAERS Safety Report 12153739 (Version 2)
Quarter: 2016Q1

REPORT INFORMATION
  Report Type: Spontaneous
  Country: AT (occurrence: AT)
  Receive Date: 20160307
  Receipt Date: 20160328
  Transmission Date: 20160526
  Serious: Yes (Hospitalization)
  Sender: FDA-Public Use
  Company Number: AT-HOSPIRA-3190862

PATIENT
  Age: 76 Year
  Sex: Female
  Weight: 77 kg

DRUGS (14)
  1. FOLINIC ACID [Concomitant]
     Active Substance: LEUCOVORIN
     Indication: COLORECTAL CANCER METASTATIC
     Dosage: DAY 1 OF EVERY DAY 14 CYCLE
     Route: 042
     Dates: start: 20150826
  2. LISINOPRIL. [Concomitant]
     Active Substance: LISINOPRIL
     Indication: HYPERTENSION
     Route: 048
     Dates: start: 2010
  3. OLEOVIT                            /00056001/ [Concomitant]
     Indication: OSTEOPOROSIS PROPHYLAXIS
     Route: 048
     Dates: start: 2010
  4. BEVACIZUMAB [Suspect]
     Active Substance: BEVACIZUMAB
     Indication: COLORECTAL CANCER METASTATIC
     Dosage: IMMEDIATELY PRECEDING IRINOTECAN
     Route: 042
     Dates: start: 20150826
  5. IRINOTECAN HYDROCHLORIDE. [Suspect]
     Active Substance: IRINOTECAN HYDROCHLORIDE
     Indication: COLORECTAL CANCER METASTATIC
     Dosage: DAY 1 OF EVERY 14 DAY CYCE
     Route: 042
     Dates: start: 20150826
  6. ATORVALAN [Concomitant]
     Indication: HYPERCHOLESTEROLAEMIA
     Route: 048
     Dates: start: 201312
  7. ATORVALAN [Concomitant]
     Indication: PROPHYLAXIS
     Route: 048
     Dates: start: 201312
  8. PANPRABENE [Concomitant]
     Indication: PROPHYLAXIS
     Route: 048
     Dates: start: 201312
  9. 5-FLUOROURACIL                     /00098801/ [Suspect]
     Active Substance: FLUOROURACIL
     Indication: COLORECTAL CANCER METASTATIC
     Dosage: UP TO 15 MINUTES; DAY 1 OF EVERY 14 DAY CYCLE
     Route: 040
     Dates: start: 20150826
  10. THROMBO ASS [Concomitant]
     Active Substance: ASPIRIN
     Indication: THROMBOSIS PROPHYLAXIS
     Route: 048
     Dates: start: 201312, end: 20150908
  11. VELIPARIB [Suspect]
     Active Substance: VELIPARIB
     Indication: COLORECTAL CANCER METASTATIC
     Dosage: DAY 2 THROUGH 5 OF EACH 14 DAY CYCLE
     Route: 048
     Dates: start: 20150824
  12. TRAMADOL. [Concomitant]
     Active Substance: TRAMADOL
     Indication: PAIN
     Route: 048
     Dates: start: 201312
  13. NOMEXOR [Concomitant]
     Active Substance: NEBIVOLOL HYDROCHLORIDE
     Indication: HYPERTENSION
     Route: 048
     Dates: start: 201312
  14. 5-FLUOROURACIL                     /00098801/ [Suspect]
     Active Substance: FLUOROURACIL
     Indication: COLORECTAL CANCER METASTATIC
     Dosage: OVER 46 HOURS, PLUS/MINUS 4 HOURS; DAY 1 OF EVERY 14 DAY CYCLE
     Route: 042

REACTIONS (8)
  - Oral herpes [Unknown]
  - Urinary tract infection [Unknown]
  - Hypokalaemia [Unknown]
  - Febrile neutropenia [Recovered/Resolved]
  - Citrobacter infection [Unknown]
  - Anaemia [Unknown]
  - Pneumonia [Unknown]
  - Neutropenia [Unknown]

NARRATIVE: CASE EVENT DATE: 20150905
